FAERS Safety Report 9307529 (Version 1)
Quarter: 2013Q2

REPORT INFORMATION
  Report Type: Spontaneous
  Country: US (occurrence: US)
  Receive Date: 20130524
  Receipt Date: 20130524
  Transmission Date: 20140414
  Serious: Yes (Other)
  Sender: FDA-Public Use
  Company Number: US-JNJFOC-20130508441

PATIENT
  Age: 62 Year
  Sex: Female

DRUGS (2)
  1. XARELTO [Suspect]
     Indication: FACTOR V LEIDEN MUTATION
     Route: 048
  2. CIMZIA [Suspect]
     Indication: CROHN^S DISEASE
     Route: 065
     Dates: start: 20130321

REACTIONS (1)
  - Rheumatoid arthritis [Not Recovered/Not Resolved]
